FAERS Safety Report 12367284 (Version 3)
Quarter: 2017Q2

REPORT INFORMATION
  Report Type: Spontaneous
  Country: US (occurrence: US)
  Receive Date: 20160513
  Receipt Date: 20170630
  Transmission Date: 20170830
  Serious: No
  Sender: FDA-Public Use
  Company Number: US-JNJFOC-20160423712

PATIENT
  Sex: Male

DRUGS (9)
  1. RISPERDAL [Suspect]
     Active Substance: RISPERIDONE
     Indication: SCHIZOPHRENIA
     Dosage: VARIOUS DOSES
     Route: 048
     Dates: start: 2003, end: 2012
  2. RISPERDAL [Suspect]
     Active Substance: RISPERIDONE
     Indication: SEIZURE
     Dosage: VARIOUS DOSES
     Route: 048
     Dates: start: 2001, end: 2003
  3. RISPERDAL [Suspect]
     Active Substance: RISPERIDONE
     Indication: MENTAL DISORDER
     Dosage: VARIOUS DOSES
     Route: 048
     Dates: start: 2012, end: 2016
  4. RISPERDAL [Suspect]
     Active Substance: RISPERIDONE
     Indication: MENTAL DISORDER
     Dosage: VARIOUS DOSES
     Route: 048
     Dates: start: 2001, end: 2003
  5. RISPERDAL [Suspect]
     Active Substance: RISPERIDONE
     Indication: SEIZURE
     Dosage: VARIOUS DOSES
     Route: 048
     Dates: start: 2003, end: 2012
  6. RISPERDAL [Suspect]
     Active Substance: RISPERIDONE
     Indication: MENTAL DISORDER
     Dosage: VARIOUS DOSES
     Route: 048
     Dates: start: 2003, end: 2012
  7. RISPERDAL [Suspect]
     Active Substance: RISPERIDONE
     Indication: SCHIZOPHRENIA
     Dosage: VARIOUS DOSES
     Route: 048
     Dates: start: 2001, end: 2003
  8. RISPERDAL [Suspect]
     Active Substance: RISPERIDONE
     Indication: SCHIZOPHRENIA
     Dosage: VARIOUS DOSES
     Route: 048
     Dates: start: 2012, end: 2016
  9. RISPERDAL [Suspect]
     Active Substance: RISPERIDONE
     Indication: SEIZURE
     Dosage: VARIOUS DOSES
     Route: 048
     Dates: start: 2012, end: 2016

REACTIONS (2)
  - Gynaecomastia [Unknown]
  - Weight increased [Unknown]
